FAERS Safety Report 9842794 (Version 1)
Quarter: 2014Q1

REPORT INFORMATION
  Report Type: Spontaneous
  Country: ZA (occurrence: ZA)
  Receive Date: 20140124
  Receipt Date: 20140124
  Transmission Date: 20141002
  Serious: Yes (Death)
  Sender: FDA-Public Use
  Company Number: ZA-PFIZER INC-2014021341

PATIENT
  Sex: 0

DRUGS (1)
  1. INDERAL [Suspect]
     Dosage: UNK

REACTIONS (3)
  - Drug dispensing error [Fatal]
  - Wrong drug administered [Fatal]
  - Sudden death [Fatal]
